FAERS Safety Report 16700505 (Version 2)
Quarter: 2019Q4

REPORT INFORMATION
  Report Type: Spontaneous
  Country: US (occurrence: US)
  Receive Date: 20190814
  Receipt Date: 20191104
  Transmission Date: 20200122
  Serious: Yes (Hospitalization)
  Sender: FDA-Public Use
  Company Number: US-ROCHE-2368147

PATIENT
  Age: 84 Year
  Sex: Female

DRUGS (1)
  1. ERIVEDGE [Suspect]
     Active Substance: VISMODEGIB
     Indication: PRODUCT USED FOR UNKNOWN INDICATION
     Route: 048
     Dates: start: 20190107

REACTIONS (6)
  - Alopecia [Unknown]
  - Dry mouth [Unknown]
  - Fall [Unknown]
  - Dysphonia [Unknown]
  - Taste disorder [Unknown]
  - Cold sweat [Unknown]

NARRATIVE: CASE EVENT DATE: 20190709
